FAERS Safety Report 16662548 (Version 1)
Quarter: 2019Q3

REPORT INFORMATION
  Report Type: Spontaneous
  Country: RU (occurrence: RU)
  Receive Date: 20190802
  Receipt Date: 20190802
  Transmission Date: 20191004
  Serious: Yes (Other)
  Sender: FDA-Public Use
  Company Number: PHHY2019RU174920

PATIENT
  Sex: Male

DRUGS (3)
  1. METHOTREXATE. [Suspect]
     Active Substance: METHOTREXATE
     Dosage: 2 MG, CYCLIC (5 INTRAVENTRICULAR INJECTIONS OF METHOTREXATE IN EACH CYCLE AT A DOSE OF 2 MG)
     Route: 016
  2. METHOTREXATE. [Suspect]
     Active Substance: METHOTREXATE
     Dosage: 5 G/M2, THIRD CYCLE (24 HOURS INFUSION, AS WELL AS 4 INTRAVENTRICULAR INJECTION OF DOSE 2MG)
     Route: 065
  3. METHOTREXATE. [Suspect]
     Active Substance: METHOTREXATE
     Indication: MEDULLOBLASTOMA
     Dosage: 5 G/M2, FIRST CYCLE (24 HOURS INFUSION, AS WELL AS 5 INTRAVENTRICULAR INJECTION OF DOSE 2MG)
     Route: 041

REACTIONS (2)
  - Toxic encephalopathy [Recovering/Resolving]
  - Product use in unapproved indication [Unknown]
